FAERS Safety Report 7735689-2 (Version None)
Quarter: 2011Q3

REPORT INFORMATION
  Report Type: 
  Country: None (occurrence: None)
  Receive Date: 20110907
  Receipt Date: 20110824
  Transmission Date: 20111222
  Serious: Yes (Other)
  Sender: FDA-Public Use
  Company Number: TW-MYLANLABS-2011S1018139

PATIENT
  Age: 41 Year
  Sex: Female

DRUGS (4)
  1. VINCRISTINE [Suspect]
     Indication: T-CELL LYMPHOMA STAGE IV
     Dosage: AS PART OF CEOP CHEMOTHERAPY
     Route: 065
  2. PREDNISOLONE [Suspect]
     Indication: T-CELL LYMPHOMA STAGE IV
     Dosage: AS PART OF CEOP CHEMOTHERAPY
     Route: 065
  3. CYCLOPHOSPHAMIDE [Suspect]
     Indication: T-CELL LYMPHOMA STAGE IV
     Dosage: AS PART OF CEOP CHEMOTHERAPY
     Route: 065
  4. EPIRUBICIN [Suspect]
     Indication: T-CELL LYMPHOMA STAGE IV
     Dosage: AS PART OF CEOP CHEMOTHERAPY
     Route: 065

REACTIONS (2)
  - ACUTE MYELOID LEUKAEMIA [None]
  - LEUKAEMIA CUTIS [None]
